FAERS Safety Report 5765699-6 (Version None)
Quarter: 2008Q2

REPORT INFORMATION
  Report Type: 
  Country: None (occurrence: None)
  Receive Date: 20080609
  Receipt Date: 20080609
  Transmission Date: 20081010
  Serious: Yes (Hospitalization)
  Sender: FDA-Public Use
  Company Number: None

PATIENT
  Sex: Female
  Weight: 85.0041 kg

DRUGS (2)
  1. ALIMTA [Suspect]
     Dosage: 769 MG BIWEEKLY IV
     Route: 042
     Dates: start: 20080402
  2. GEMZAR [Suspect]
     Dosage: 2280MG BIWEEKLY IV
     Route: 042
     Dates: start: 20080402

REACTIONS (4)
  - CONSTIPATION [None]
  - NAUSEA [None]
  - ORAL INTAKE REDUCED [None]
  - VOMITING [None]
